FAERS Safety Report 18451586 (Version 2)
Quarter: 2020Q4

REPORT INFORMATION
  Report Type: Spontaneous
  Country: US (occurrence: US)
  Receive Date: 20201102
  Receipt Date: 20201116
  Transmission Date: 20210114
  Serious: Yes (Other)
  Sender: FDA-Public Use
  Company Number: US-009507513-2010USA010247

PATIENT
  Age: 30 Year
  Sex: Female

DRUGS (6)
  1. PROVENTIL [Suspect]
     Active Substance: ALBUTEROL
     Dosage: UNK, CONTINUOUS, VIA NEBULIZATION
     Route: 055
  2. MAGNESIUM (UNSPECIFIED) [Concomitant]
     Active Substance: MAGNESIUM
     Dosage: UNK
     Route: 042
  3. OSELTAMIVIR [Concomitant]
     Active Substance: OSELTAMIVIR
     Dosage: UNK
     Route: 048
  4. PROVENTIL [Suspect]
     Active Substance: ALBUTEROL
     Dosage: UNK, SWITCHED TO AN INTERVAL SCHEDULED DOSING, VIA NEBULIZATION
     Route: 055
  5. SODIUM CHLORIDE. [Concomitant]
     Active Substance: SODIUM CHLORIDE
     Dosage: UNK
     Route: 042
  6. POTASSIUM (UNSPECIFIED) [Concomitant]
     Active Substance: POTASSIUM
     Dosage: UNK
     Route: 042

REACTIONS (1)
  - Lactic acidosis [Recovered/Resolved]
